FAERS Safety Report 7019653-7 (Version None)
Quarter: 2010Q3

REPORT INFORMATION
  Report Type: 
  Country: None (occurrence: None)
  Receive Date: 20100928
  Receipt Date: 20100920
  Transmission Date: 20110219
  Serious: Yes (Other)
  Sender: FDA-Public Use
  Company Number: PHHY2010US62469

PATIENT
  Sex: Female

DRUGS (6)
  1. RECLAST [Suspect]
     Dosage: UNK
     Dates: start: 20090901
  2. FOSAMAX [Suspect]
  3. VITAMIN D [Concomitant]
  4. MULTI-VITAMINS [Concomitant]
  5. CALCIUM [Concomitant]
  6. ASPIRIN [Concomitant]

REACTIONS (5)
  - ANAEMIA [None]
  - FULL BLOOD COUNT DECREASED [None]
  - INFLUENZA [None]
  - KNEE OPERATION [None]
  - MALAISE [None]
